FAERS Safety Report 20890456 (Version 1)
Quarter: 2022Q2

REPORT INFORMATION
  Report Type: Spontaneous
  Country: SK (occurrence: SK)
  Receive Date: 20220530
  Receipt Date: 20220530
  Transmission Date: 20220720
  Serious: Yes (Other)
  Sender: FDA-Public Use
  Company Number: SK-Merck Healthcare KGaA-9299683

PATIENT
  Age: 68 Year
  Sex: Male
  Weight: 101 kg

DRUGS (13)
  1. GLIMEPIRIDE [Suspect]
     Active Substance: GLIMEPIRIDE
     Indication: Type 2 diabetes mellitus
     Dosage: UNKNOWN DOSE
     Dates: start: 2014
  2. GLIMEPIRIDE [Suspect]
     Active Substance: GLIMEPIRIDE
     Dosage: 2 MG
     Dates: end: 202002
  3. METFORMIN HYDROCHLORIDE [Suspect]
     Active Substance: METFORMIN HYDROCHLORIDE
     Indication: Type 2 diabetes mellitus
     Dosage: 850 MG, QD
     Dates: start: 2008
  4. METFORMIN HYDROCHLORIDE [Suspect]
     Active Substance: METFORMIN HYDROCHLORIDE
     Dosage: 850 MG, BID
  5. METFORMIN HYDROCHLORIDE [Suspect]
     Active Substance: METFORMIN HYDROCHLORIDE
     Dosage: 1 G, BID
  6. INSULIN GLARGINE [Suspect]
     Active Substance: INSULIN GLARGINE
     Indication: Type 2 diabetes mellitus
     Dosage: 300 (UNITS UNSPECIFIED)
     Dates: start: 2014
  7. INSULIN GLARGINE [Suspect]
     Active Substance: INSULIN GLARGINE
     Dosage: 38 IU
     Dates: end: 202002
  8. INSULIN DEGLUDEC;LIRAGLUTIDE [Concomitant]
     Indication: Type 2 diabetes mellitus
     Dosage: THE DOSE OF IDEGLIRA WAS TITRATED A 3 DAYS PLUS 2 UNITS
  9. INSULIN DEGLUDEC;LIRAGLUTIDE [Concomitant]
     Dosage: 38 IU
  10. INSULIN DEGLUDEC;LIRAGLUTIDE [Concomitant]
     Dosage: 34 IU
     Dates: start: 202110
  11. INSULIN DEGLUDEC;LIRAGLUTIDE [Concomitant]
     Dosage: 16 IU
     Dates: start: 202002
  12. INSULIN DEGLUDEC;LIRAGLUTIDE [Concomitant]
     Dosage: 34 IU
  13. ATORVASTATIN [Concomitant]
     Active Substance: ATORVASTATIN
     Indication: Product used for unknown indication
     Dosage: UNK

REACTIONS (3)
  - Therapeutic response decreased [Unknown]
  - Diabetic metabolic decompensation [Recovering/Resolving]
  - Weight increased [Unknown]

NARRATIVE: CASE EVENT DATE: 20140101
